FAERS Safety Report 21227689 (Version 1)
Quarter: 2022Q3

REPORT INFORMATION
  Report Type: Spontaneous
  Country: DE (occurrence: DE)
  Receive Date: 20220818
  Receipt Date: 20220818
  Transmission Date: 20221026
  Serious: Yes (Other)
  Sender: FDA-Public Use
  Company Number: DE-BRISTOL-MYERS SQUIBB COMPANY-2022-074821

PATIENT
  Age: 63 Year
  Sex: Female

DRUGS (5)
  1. LOPERAMIDE [Suspect]
     Active Substance: LOPERAMIDE
     Indication: Diarrhoea
     Dosage: UNK
     Route: 065
  2. OPDIVO [Suspect]
     Active Substance: NIVOLUMAB
     Indication: Hepatocellular carcinoma
     Dosage: 1ST DOSE, MILLIGRAM/KILOGRAM
     Route: 065
     Dates: start: 202112
  3. OPDIVO [Suspect]
     Active Substance: NIVOLUMAB
     Dosage: SECOND DOSE, 1 MILLIGRAM/KILOGRAM
     Route: 065
     Dates: start: 202201
  4. YERVOY [Suspect]
     Active Substance: IPILIMUMAB
     Indication: Hepatocellular carcinoma
     Dosage: FIRST DOSE, 3 MILLIGRAM/KILOGRAM
     Route: 065
     Dates: start: 202112
  5. YERVOY [Suspect]
     Active Substance: IPILIMUMAB
     Dosage: SECOND DOSE, 3 MILLIGRAM/KILOGRAM
     Route: 065
     Dates: start: 202201

REACTIONS (5)
  - Immune-mediated enterocolitis [Unknown]
  - Urinary tract infection [Unknown]
  - Intentional product use issue [Unknown]
  - Diarrhoea [Unknown]
  - Rash [Unknown]
